FAERS Safety Report 9375856 (Version 1)
Quarter: 2013Q2

REPORT INFORMATION
  Report Type: Spontaneous
  Country: JP (occurrence: JP)
  Receive Date: 20130628
  Receipt Date: 20130628
  Transmission Date: 20140414
  Serious: Yes (Hospitalization)
  Sender: FDA-Public Use
  Company Number: JP-B.I. PHARMACEUTICALS,INC./RIDGEFIELD-2013-BI-18060NB

PATIENT
  Age: 81 Year
  Sex: Female

DRUGS (1)
  1. MICARDIS [Suspect]
     Route: 048

REACTIONS (4)
  - Femoral neck fracture [Unknown]
  - Dementia [Unknown]
  - Dementia [Unknown]
  - Dysphagia [Unknown]
